FAERS Safety Report 11419789 (Version 1)
Quarter: 2015Q3

REPORT INFORMATION
  Report Type: Spontaneous
  Country: US (occurrence: None)
  Receive Date: 20150825
  Receipt Date: 20150825
  Transmission Date: 20151125
  Serious: No
  Sender: FDA-Public Use
  Company Number: None

PATIENT
  Age: 45 Year
  Sex: Female
  Weight: 58.06 kg

DRUGS (10)
  1. ADDERLOL [Concomitant]
  2. VITAMIN D [Concomitant]
     Active Substance: CHOLECALCIFEROL
  3. BENADRYL [Concomitant]
     Active Substance: DIPHENHYDRAMINE HYDROCHLORIDE
  4. MOTRIN [Concomitant]
     Active Substance: IBUPROFEN
  5. HYDROMORPHONE [Suspect]
     Active Substance: HYDROMORPHONE
     Indication: CYST
     Route: 048
     Dates: start: 20150820, end: 20150823
  6. HYDROMORPHONE [Suspect]
     Active Substance: HYDROMORPHONE
     Indication: ENDOMETRIOSIS
     Route: 048
     Dates: start: 20150820, end: 20150823
  7. FLONASE [Concomitant]
     Active Substance: FLUTICASONE PROPIONATE
  8. HYDROMORPHONE [Suspect]
     Active Substance: HYDROMORPHONE
     Indication: FEMALE STERILISATION
     Route: 048
     Dates: start: 20150820, end: 20150823
  9. ATIVAN [Concomitant]
     Active Substance: LORAZEPAM
  10. TORADOL [Concomitant]
     Active Substance: KETOROLAC TROMETHAMINE

REACTIONS (13)
  - Bladder pain [None]
  - Dysarthria [None]
  - Ageusia [None]
  - Palpitations [None]
  - Hallucination, visual [None]
  - Musculoskeletal stiffness [None]
  - Dysphagia [None]
  - Urine output decreased [None]
  - Pruritus generalised [None]
  - Abdominal distension [None]
  - Dysgeusia [None]
  - Vision blurred [None]
  - Constipation [None]

NARRATIVE: CASE EVENT DATE: 20150821
